FAERS Safety Report 4847566-5 (Version None)
Quarter: 2005Q4

REPORT INFORMATION
  Report Type: 
  Country: None (occurrence: None)
  Receive Date: 20051205
  Receipt Date: 20051124
  Transmission Date: 20060501
  Serious: Yes (Hospitalization)
  Sender: FDA-Public Use
  Company Number: 2005-10-0027

PATIENT
  Age: 64 Year
  Sex: Male

DRUGS (19)
  1. INTRON A [Suspect]
     Indication: METASTATIC RENAL CELL CARCINOMA
     Dosage: SEE IMAGE
     Route: 058
     Dates: start: 20050905, end: 20050911
  2. INTRON A [Suspect]
     Indication: METASTATIC RENAL CELL CARCINOMA
     Dosage: SEE IMAGE
     Route: 058
     Dates: start: 20050912, end: 20050925
  3. INTRON A [Suspect]
     Indication: METASTATIC RENAL CELL CARCINOMA
     Dosage: SEE IMAGE
     Route: 058
     Dates: start: 20050926, end: 20050928
  4. INTERLEUKIN-2 INJECTABLE [Suspect]
     Indication: METASTATIC RENAL CELL CARCINOMA
     Dosage: SEE IMAGE
     Route: 058
     Dates: start: 20050907, end: 20050909
  5. INTERLEUKIN-2 INJECTABLE [Suspect]
     Indication: METASTATIC RENAL CELL CARCINOMA
     Dosage: SEE IMAGE
     Route: 058
     Dates: start: 20050912, end: 20050912
  6. INTERLEUKIN-2 INJECTABLE [Suspect]
     Indication: METASTATIC RENAL CELL CARCINOMA
     Dosage: SEE IMAGE
     Route: 058
     Dates: start: 20050914, end: 20050914
  7. INTERLEUKIN-2 INJECTABLE [Suspect]
     Indication: METASTATIC RENAL CELL CARCINOMA
     Dosage: SEE IMAGE
     Route: 058
     Dates: start: 20050916, end: 20050916
  8. INTERLEUKIN-2 INJECTABLE [Suspect]
     Indication: METASTATIC RENAL CELL CARCINOMA
     Dosage: SEE IMAGE
     Route: 058
     Dates: start: 20050919, end: 20050919
  9. INTERLEUKIN-2 INJECTABLE [Suspect]
     Indication: METASTATIC RENAL CELL CARCINOMA
     Dosage: SEE IMAGE
     Route: 058
     Dates: start: 20050921, end: 20050921
  10. INTERLEUKIN-2 INJECTABLE [Suspect]
     Indication: METASTATIC RENAL CELL CARCINOMA
     Dosage: SEE IMAGE
     Route: 058
     Dates: start: 20050923, end: 20050923
  11. INTERLEUKIN-2 INJECTABLE [Suspect]
     Indication: METASTATIC RENAL CELL CARCINOMA
     Dosage: SEE IMAGE
     Route: 058
     Dates: start: 20050926, end: 20050926
  12. INTERLEUKIN-2 INJECTABLE [Suspect]
     Indication: METASTATIC RENAL CELL CARCINOMA
     Dosage: SEE IMAGE
     Route: 058
     Dates: start: 20050928, end: 20050928
  13. INTERLEUKIN-2 INJECTABLE [Suspect]
     Indication: METASTATIC RENAL CELL CARCINOMA
     Dosage: SEE IMAGE
     Route: 058
     Dates: start: 20050930, end: 20050930
  14. FLUOROURACIL [Suspect]
     Indication: METASTATIC RENAL CELL CARCINOMA
     Dosage: INTRAVENOUS
     Dates: end: 20050928
  15. ATENOLOL [Concomitant]
  16. DOXAZOSIN [Concomitant]
  17. AMLODIPINE [Concomitant]
  18. ASPIRIN [Concomitant]
  19. ATORVASTATIN CALCIUM [Concomitant]

REACTIONS (3)
  - ATRIOVENTRICULAR BLOCK [None]
  - BRADYCARDIA [None]
  - LOSS OF CONSCIOUSNESS [None]
